FAERS Safety Report 9000137 (Version 2)
Quarter: 2013Q1

REPORT INFORMATION
  Report Type: Spontaneous
  Country: US (occurrence: US)
  Receive Date: 20130102
  Receipt Date: 20130221
  Transmission Date: 20140127
  Serious: Yes (Disabling, Other)
  Sender: FDA-Public Use
  Company Number: US-ASTELLAS-2012US012866

PATIENT
  Age: 79 Year
  Sex: Male
  Weight: 104 kg

DRUGS (2)
  1. XTANDI [Suspect]
     Indication: PROSTATE CANCER
     Dosage: 160 MG, UID/QD
     Route: 048
     Dates: start: 20121212
  2. UNSPECIFIED MEDICATION [Concomitant]
     Indication: BLOOD PRESSURE
     Dosage: UNK
     Route: 065

REACTIONS (4)
  - Abasia [Unknown]
  - Swelling face [Unknown]
  - Renal impairment [Unknown]
  - Decreased appetite [Unknown]
